FAERS Safety Report 8301515 (Version 2)
Quarter: 2013Q4

REPORT INFORMATION
  Report Type: Spontaneous
  Country: US (occurrence: US)
  Receive Date: 20111220
  Receipt Date: 20131231
  Transmission Date: 20140711
  Serious: Yes (Other)
  Sender: FDA-Public Use
  Company Number: US-RANBAXY-2011US-51099

PATIENT
  Age: 53 Year
  Sex: Male

DRUGS (5)
  1. FLECAINIDE ACETATE [Suspect]
     Indication: ATRIAL FIBRILLATION
     Dosage: 50 MG, BID
     Route: 065
  2. FLECAINIDE ACETATE [Suspect]
     Dosage: 100 MG, BID
     Route: 065
  3. FLECAINIDE ACETATE [Suspect]
     Dosage: 150 MG, BID
     Route: 065
  4. FLECAINIDE ACETATE [Suspect]
     Dosage: UNK
     Route: 065
  5. SOLATOL [Concomitant]
     Indication: PRODUCT USED FOR UNKNOWN INDICATION
     Dosage: 160 MG, BID
     Route: 065

REACTIONS (3)
  - Electrocardiogram abnormal [Recovered/Resolved]
  - Therapeutic response decreased [Unknown]
  - Intentional overdose [Unknown]
